FAERS Safety Report 9507569 (Version 2)
Quarter: 2013Q3

REPORT INFORMATION
  Report Type: Spontaneous
  Country: US (occurrence: US)
  Receive Date: 20130909
  Receipt Date: 20130909
  Transmission Date: 20140515
  Serious: Yes (Hospitalization)
  Sender: FDA-Public Use
  Company Number: US-UCBSA-095949

PATIENT
  Age: 49 Year
  Sex: Male

DRUGS (4)
  1. KEPPRA XR [Suspect]
     Indication: CONVULSION
     Dates: end: 2013
  2. KEPPRA XR [Suspect]
     Indication: CONVULSION
     Dates: start: 2013
  3. XANAX [Concomitant]
     Indication: ANXIETY
     Dosage: UNSPECIFIED DOSE
  4. LORTAB [Concomitant]
     Dosage: UNSPECIFIED DOSE

REACTIONS (3)
  - Myocardial infarction [Recovered/Resolved]
  - Convulsion [Recovered/Resolved]
  - Inappropriate schedule of drug administration [Unknown]
